FAERS Safety Report 6150527-X (Version None)
Quarter: 2009Q2

REPORT INFORMATION
  Report Type: 
  Country: None (occurrence: None)
  Receive Date: 20090409
  Receipt Date: 20090330
  Transmission Date: 20091009
  Serious: Yes (Hospitalization, Other)
  Sender: FDA-Public Use
  Company Number: IE-MEDIMMUNE-MEDI-0007311

PATIENT
  Age: 5 Month
  Sex: Male

DRUGS (1)
  1. SYNAGIS [Suspect]
     Indication: ANTIVIRAL PROPHYLAXIS
     Dosage: UNKNOWN
     Route: 065
     Dates: start: 20081015, end: 20081015

REACTIONS (8)
  - BENIGN INTRACRANIAL HYPERTENSION [None]
  - DIARRHOEA [None]
  - FONTANELLE BULGING [None]
  - INTRACRANIAL PRESSURE INCREASED [None]
  - IRRITABILITY [None]
  - ROTAVIRUS INFECTION [None]
  - VITH NERVE PARALYSIS [None]
  - VOMITING [None]
